FAERS Safety Report 25496784 (Version 1)
Quarter: 2025Q3

REPORT INFORMATION
  Report Type: Report from Study
  Country: US (occurrence: US)
  Receive Date: 20250701
  Receipt Date: 20250701
  Transmission Date: 20251020
  Serious: Yes (Hospitalization, Other)
  Sender: ABBVIE
  Company Number: US-ABBVIE-6337426

PATIENT
  Age: 72 Year
  Sex: Male
  Weight: 83.46 kg

DRUGS (2)
  1. CREON [Suspect]
     Active Substance: PANCRELIPASE AMYLASE\PANCRELIPASE LIPASE\PANCRELIPASE PROTEASE
     Indication: Pancreatic failure
     Route: 048
     Dates: start: 20241008
  2. INSULIN NOS [Concomitant]
     Active Substance: INSULIN NOS
     Indication: Diabetes mellitus

REACTIONS (6)
  - Pyrexia [Recovered/Resolved]
  - Weight increased [Not Recovered/Not Resolved]
  - Blood magnesium decreased [Recovered/Resolved]
  - Weight decreased [Recovering/Resolving]
  - Full blood count decreased [Recovered/Resolved]
  - Blood potassium decreased [Recovered/Resolved]

NARRATIVE: CASE EVENT DATE: 20250501
